FAERS Safety Report 13208747 (Version 2)
Quarter: 2018Q1

REPORT INFORMATION
  Report Type: Spontaneous
  Country: US (occurrence: US)
  Receive Date: 20170209
  Receipt Date: 20180219
  Transmission Date: 20180508
  Serious: No
  Sender: FDA-Public Use
  Company Number: US-ROCHE-1746422

PATIENT
  Sex: Male

DRUGS (7)
  1. XOLAIR [Suspect]
     Active Substance: OMALIZUMAB
     Indication: ASTHMA
     Dosage: 150MG/1.2ML
     Route: 058
     Dates: start: 20121129
  2. GABAPENTIN. [Concomitant]
     Active Substance: GABAPENTIN
  3. TESTOSTERONE. [Concomitant]
     Active Substance: TESTOSTERONE
  4. HUMIRA [Concomitant]
     Active Substance: ADALIMUMAB
     Route: 058
     Dates: start: 20150924
  5. GRALISE [Concomitant]
     Active Substance: GABAPENTIN
  6. DULERA [Concomitant]
     Active Substance: FORMOTEROL FUMARATE DIHYDRATE\MOMETASONE FUROATE
  7. OMEPRAZOLE. [Concomitant]
     Active Substance: OMEPRAZOLE

REACTIONS (4)
  - Dysphagia [Unknown]
  - Paraesthesia [Unknown]
  - Pneumonia [Recovered/Resolved]
  - Pain [Unknown]
